FAERS Safety Report 8896334 (Version 1)
Quarter: 2012Q4

REPORT INFORMATION
  Report Type: Spontaneous
  Country: US (occurrence: None)
  Receive Date: 20121031
  Receipt Date: 20121031
  Transmission Date: 20130627
  Serious: Yes (Other)
  Sender: FDA-Public Use
  Company Number: FK201203126

PATIENT
  Age: 80 Year
  Sex: Male

DRUGS (3)
  1. AMIODARONE HCL [Suspect]
     Indication: ATRIAL FIBRILLATION
  2. CYCLOPHOSPHAMIDE [Suspect]
  3. WARFARIN (WARFARIN) [Concomitant]

REACTIONS (7)
  - Epistaxis [None]
  - Haemoptysis [None]
  - Haematuria [None]
  - Ecchymosis [None]
  - Coagulopathy [None]
  - Coagulation factor V level abnormal [None]
  - International normalised ratio increased [None]
